FAERS Safety Report 6793163-4 (Version None)
Quarter: 2010Q2

REPORT INFORMATION
  Report Type: 
  Country: None (occurrence: None)
  Receive Date: 20100624
  Receipt Date: 20090619
  Transmission Date: 20101027
  Serious: Yes (Death)
  Sender: FDA-Public Use
  Company Number: US-MYLANLABS-2009S1011146

PATIENT
  Age: 67 Year
  Sex: Male

DRUGS (7)
  1. CLOZAPINE [Suspect]
     Route: 048
     Dates: end: 20090101
  2. CLONAZEPAM [Concomitant]
  3. ASPIRIN [Concomitant]
  4. TYLENOL [Concomitant]
  5. MORPHINE [Concomitant]
  6. ROCEPHIN [Concomitant]
  7. CEFTRIAXONE [Concomitant]

REACTIONS (2)
  - DYSPHAGIA [None]
  - PNEUMONIA ASPIRATION [None]
